FAERS Safety Report 6066560-2 (Version None)
Quarter: 2009Q1

REPORT INFORMATION
  Report Type: 
  Country: None (occurrence: None)
  Receive Date: 20090205
  Receipt Date: 20090129
  Transmission Date: 20090719
  Serious: Yes (Death, Hospitalization)
  Sender: FDA-Public Use
  Company Number: A0757476A

PATIENT
  Age: 61 Year
  Sex: Male
  Weight: 84.1 kg

DRUGS (18)
  1. AVANDIA [Suspect]
     Dosage: 8MG PER DAY
     Route: 048
     Dates: end: 20060101
  2. BUPROPION HCL [Concomitant]
  3. NIASPAN [Concomitant]
  4. SPIRIVA [Concomitant]
  5. ACIPHEX [Concomitant]
  6. NORVASC [Concomitant]
  7. INSULIN [Concomitant]
  8. HYDROXYCHLOROQUINE SULFATE [Concomitant]
  9. LOVASTATIN [Concomitant]
  10. CLONIDINE HCL [Concomitant]
  11. DIPYRIDAMOLE [Concomitant]
  12. ASPIRIN [Concomitant]
  13. ATENOLOL [Concomitant]
  14. COZAAR [Concomitant]
  15. AZATHIOPRINE [Concomitant]
  16. PLAQUENIL [Concomitant]
  17. QUINAPRIL [Concomitant]
  18. SUPPLEMENT [Concomitant]

REACTIONS (3)
  - ACUTE MYOCARDIAL INFARCTION [None]
  - CARDIAC FAILURE CONGESTIVE [None]
  - RESPIRATORY FAILURE [None]
